FAERS Safety Report 15538817 (Version 2)
Quarter: 2020Q1

REPORT INFORMATION
  Report Type: Spontaneous
  Country: CA (occurrence: CA)
  Receive Date: 20181022
  Receipt Date: 20200318
  Transmission Date: 20200409
  Serious: Yes (Hospitalization, Other)
  Sender: FDA-Public Use
  Company Number: CA-GLAXOSMITHKLINE-CA2018191366

PATIENT
  Age: 62 Year
  Sex: Female
  Weight: 65.83 kg

DRUGS (2)
  1. NICORETTE [Suspect]
     Active Substance: NICOTINE
     Indication: ACCIDENTAL EXPOSURE TO PRODUCT
     Dosage: 4 MG,ONE CHICKLET
     Route: 048
     Dates: start: 20160801, end: 20160904
  2. HUMALOG [Concomitant]
     Active Substance: INSULIN LISPRO
     Indication: PRODUCT USED FOR UNKNOWN INDICATION
     Dosage: UNK
     Route: 065

REACTIONS (9)
  - Blood pressure increased [Recovered/Resolved]
  - Seizure [Recovered/Resolved]
  - Dysstasia [Recovered/Resolved]
  - Dizziness [Recovered/Resolved]
  - Vomiting [Recovered/Resolved]
  - Dysarthria [Recovered/Resolved]
  - Helplessness [Recovered/Resolved]
  - Nausea [Recovered/Resolved]
  - Hypotonia [Recovered/Resolved]
